FAERS Safety Report 8280290-8 (Version None)
Quarter: 2012Q2

REPORT INFORMATION
  Report Type: 
  Country: None (occurrence: None)
  Receive Date: 20120412
  Receipt Date: 20111201
  Transmission Date: 20120825
  Serious: No
  Sender: FDA-Public Use
  Company Number: US-ASTRAZENECA-2011SE73170

PATIENT
  Age: 63 Year
  Sex: Male
  Weight: 61.7 kg

DRUGS (9)
  1. NEXIUM [Suspect]
     Route: 048
  2. LIPITOR [Concomitant]
  3. PERPHEN AMITRIPTYLINE [Concomitant]
  4. FISH OIL [Concomitant]
  5. VITAMIN [Concomitant]
  6. LISINOPRIL AND HYDROCHLOROTHIAZIDE [Concomitant]
     Indication: BLOOD PRESSURE ABNORMAL
  7. GENERIC VICODIN [Concomitant]
     Indication: PAIN
  8. PRILOSEC [Suspect]
     Indication: GASTROOESOPHAGEAL REFLUX DISEASE
     Route: 048
  9. ASPIRIN [Concomitant]

REACTIONS (3)
  - DRUG DOSE OMISSION [None]
  - ABDOMINAL DISCOMFORT [None]
  - DRUG INEFFECTIVE [None]
